FAERS Safety Report 22272979 (Version 1)
Quarter: 2023Q2

REPORT INFORMATION
  Report Type: Report from Study
  Country: US (occurrence: None)
  Receive Date: 20230502
  Receipt Date: 20230502
  Transmission Date: 20230722
  Serious: Yes (Hospitalization)
  Sender: FDA-Public Use
  Company Number: 2023A096163

PATIENT
  Sex: Male
  Weight: 89.8 kg

DRUGS (17)
  1. CALQUENCE [Suspect]
     Active Substance: ACALABRUTINIB
     Indication: Chronic lymphocytic leukaemia
     Route: 048
  2. ALDARA [Concomitant]
     Active Substance: IMIQUIMOD
  3. ALLOPURINOL [Concomitant]
     Active Substance: ALLOPURINOL
  4. B COMPLEX-VITAMIN C [Concomitant]
  5. CARAFATE [Concomitant]
     Active Substance: SUCRALFATE
  6. COLACE [Concomitant]
     Active Substance: DOCUSATE SODIUM
  7. COENZYME Q10 [Concomitant]
     Active Substance: DIETARY SUPPLEMENT\UBIDECARENONE
  8. FLOMAX [Concomitant]
     Active Substance: TAMSULOSIN HYDROCHLORIDE
  9. FUROSEMIDE [Concomitant]
     Active Substance: FUROSEMIDE
  10. HYDROCHLOROTHIAZIDE [Concomitant]
     Active Substance: HYDROCHLOROTHIAZIDE
  11. METOPROLOL [Concomitant]
     Active Substance: METOPROLOL
  12. NEBIVOLOL [Concomitant]
     Active Substance: NEBIVOLOL
  13. PRADAXA [Concomitant]
     Active Substance: DABIGATRAN ETEXILATE MESYLATE
  14. PROTONIX [Concomitant]
     Active Substance: PANTOPRAZOLE SODIUM
  15. MAGNESIUM [Concomitant]
     Active Substance: MAGNESIUM
  16. ROCEPHIN [Concomitant]
     Active Substance: CEFTRIAXONE SODIUM
  17. SIMVASTATIN [Concomitant]
     Active Substance: SIMVASTATIN

REACTIONS (2)
  - Fall [Recovered/Resolved]
  - Pneumonia [Recovered/Resolved]
